FAERS Safety Report 13078314 (Version 1)
Quarter: 2017Q1

REPORT INFORMATION
  Report Type: Spontaneous
  Country: US (occurrence: US)
  Receive Date: 20170102
  Receipt Date: 20170102
  Transmission Date: 20170428
  Serious: Yes (Hospitalization)
  Sender: FDA-Public Use
  Company Number: US-VANDA PHARMACEUTICALS, INC-2016ILOUS001573

PATIENT
  Age: 62 Year
  Sex: Female

DRUGS (3)
  1. FANAPT [Suspect]
     Active Substance: ILOPERIDONE
     Dosage: 2 MG, EVERY MORNING
     Dates: start: 201612
  2. FANAPT [Suspect]
     Active Substance: ILOPERIDONE
     Indication: AFFECTIVE DISORDER
     Dosage: 6 MG, EVERY EVENING
     Route: 048
     Dates: start: 2014
  3. FANAPT [Suspect]
     Active Substance: ILOPERIDONE
     Indication: SCHIZOPHRENIA
     Dosage: 4 MG, EVERY MORNING
     Route: 048
     Dates: start: 2014, end: 201612

REACTIONS (1)
  - Hypotension [Unknown]

NARRATIVE: CASE EVENT DATE: 20161027
